FAERS Safety Report 24706353 (Version 3)
Quarter: 2025Q1

REPORT INFORMATION
  Report Type: Spontaneous
  Country: FR (occurrence: FR)
  Receive Date: 20241206
  Receipt Date: 20250319
  Transmission Date: 20250409
  Serious: No
  Sender: PFIZER
  Company Number: FR-PFIZER INC-PV202400157591

PATIENT
  Sex: Male

DRUGS (1)
  1. NGENLA [Suspect]
     Active Substance: SOMATROGON-GHLA
     Dates: start: 2023

REACTIONS (2)
  - Injection site pain [Unknown]
  - Patient-device incompatibility [Unknown]
